FAERS Safety Report 10052729 (Version 4)
Quarter: 2016Q1

REPORT INFORMATION
  Report Type: Spontaneous
  Country: SE (occurrence: SE)
  Receive Date: 20140402
  Receipt Date: 20160315
  Transmission Date: 20160525
  Serious: Yes (Other)
  Sender: FDA-Public Use
  Company Number: SE-PFIZER INC-2014088534

PATIENT
  Age: 34 Year
  Sex: Female

DRUGS (5)
  1. DYMISTA [Concomitant]
     Active Substance: AZELASTINE HYDROCHLORIDE\FLUTICASONE PROPIONATE
  2. BUVENTOL [Concomitant]
  3. PULMICORT TURBUHALER [Concomitant]
     Active Substance: BUDESONIDE
  4. CELEBRA [Suspect]
     Active Substance: CELECOXIB
     Indication: FIBROMYALGIA
     Dosage: 200 MG, 1X/DAY
     Dates: start: 20000101, end: 20140201
  5. ALVESCO [Concomitant]
     Active Substance: CICLESONIDE

REACTIONS (2)
  - Asthma [Recovered/Resolved]
  - Respiratory tract infection [Recovered/Resolved]

NARRATIVE: CASE EVENT DATE: 20000101
